FAERS Safety Report 24124368 (Version 1)
Quarter: 2024Q3

REPORT INFORMATION
  Report Type: Spontaneous
  Country: FR (occurrence: FR)
  Receive Date: 20240723
  Receipt Date: 20240723
  Transmission Date: 20241016
  Serious: Yes (Death)
  Sender: EMD SERONO INC
  Company Number: None

PATIENT
  Age: 82 Year
  Sex: Male
  Weight: 71 kg

DRUGS (9)
  1. BISOPROLOL [Suspect]
     Active Substance: BISOPROLOL\BISOPROLOL FUMARATE
     Indication: Cardiac failure
     Route: 048
     Dates: start: 20190615, end: 20240601
  2. METFORMIN [Suspect]
     Active Substance: METFORMIN HYDROCHLORIDE
     Indication: Type 2 diabetes mellitus
     Route: 048
     Dates: start: 20240221
  3. CANDESARTAN [Suspect]
     Active Substance: CANDESARTAN
     Indication: Hypertension
     Route: 048
     Dates: start: 20240422, end: 20240601
  4. COTRIMOXAZOLE [Suspect]
     Active Substance: SULFAMETHOXAZOLE\TRIMETHOPRIM
     Indication: Urinary tract infection
     Route: 048
     Dates: start: 20240529, end: 20240601
  5. FUROSEMIDE [Suspect]
     Active Substance: FUROSEMIDE
     Indication: Chronic kidney disease
     Route: 048
     Dates: start: 20240328, end: 20240601
  6. AMIODARONE [Concomitant]
     Active Substance: AMIODARONE
     Indication: Product used for unknown indication
  7. ALPRAZOLAM [Concomitant]
     Active Substance: ALPRAZOLAM
     Indication: Product used for unknown indication
  8. KARDEGIC [Concomitant]
     Active Substance: ASPIRIN DL-LYSINE
     Indication: Product used for unknown indication
     Dosage: POWDER FOR ORAL SOLUTION IN SACHET
     Route: 048
  9. ACETAMINOPHEN [Concomitant]
     Active Substance: ACETAMINOPHEN
     Indication: Product used for unknown indication

REACTIONS (4)
  - Hypoglycaemia [Fatal]
  - Lactic acidosis [Fatal]
  - End stage renal disease [Fatal]
  - Hyperkalaemia [Fatal]

NARRATIVE: CASE EVENT DATE: 20240601
